FAERS Safety Report 5715699-7 (Version None)
Quarter: 2008Q2

REPORT INFORMATION
  Report Type: 
  Country: None (occurrence: None)
  Receive Date: 20080424
  Receipt Date: 20080417
  Transmission Date: 20081010
  Serious: Yes (Hospitalization)
  Sender: FDA-Public Use
  Company Number: FR-WYE-G01418808

PATIENT
  Sex: Male

DRUGS (2)
  1. EFFEXOR [Suspect]
     Route: 048
     Dates: start: 20071001, end: 20071129
  2. ATARAX [Suspect]
     Route: 048
     Dates: start: 20071101, end: 20071129

REACTIONS (7)
  - AGITATION [None]
  - CONFUSIONAL STATE [None]
  - CONSTIPATION [None]
  - FALL [None]
  - GENERAL PHYSICAL HEALTH DETERIORATION [None]
  - POLLAKIURIA [None]
  - URINARY RETENTION [None]
